FAERS Safety Report 8520455-0 (Version None)
Quarter: 2012Q3

REPORT INFORMATION
  Report Type: 
  Country: None (occurrence: None)
  Receive Date: 20120719
  Receipt Date: 20120716
  Transmission Date: 20120928
  Serious: Yes (Hospitalization)
  Sender: FDA-Public Use
  Company Number: IT-PFIZER INC-2012171437

PATIENT
  Age: 45 Year
  Sex: Female

DRUGS (3)
  1. FLUOROURACIL [Suspect]
     Indication: COLORECTAL CANCER
     Dosage: 3500 MG, CYCLIC
     Route: 042
     Dates: start: 20110622, end: 20111102
  2. ERBITUX [Suspect]
     Indication: COLORECTAL CANCER
     Dosage: 447.5 MG, WEEKLY
     Route: 042
     Dates: start: 20110622, end: 20111102
  3. IRINOTECAN HYDROCHLORIDE [Suspect]
     Indication: COLORECTAL CANCER
     Dosage: 322.2 MG, CYCLIC
     Route: 042
     Dates: start: 20110622, end: 20111102

REACTIONS (2)
  - SKIN ULCER [None]
  - GASTROENTERITIS [None]
